FAERS Safety Report 7373081-3 (Version None)
Quarter: 2011Q1

REPORT INFORMATION
  Report Type: 
  Country: None (occurrence: None)
  Receive Date: 20110324
  Receipt Date: 20110318
  Transmission Date: 20110831
  Serious: Yes (Other)
  Sender: FDA-Public Use
  Company Number: JP-PFIZER INC-2011044901

PATIENT
  Age: 33 Year
  Sex: Male
  Weight: 44.4 kg

DRUGS (10)
  1. HALCION [Suspect]
     Indication: INSOMNIA
     Dosage: 500 MG, 1X/DAY
     Route: 048
     Dates: start: 20110214, end: 20110222
  2. VEGETAMIN B [Concomitant]
     Indication: INSOMNIA
     Dosage: UNK
     Route: 048
     Dates: start: 20110221, end: 20110221
  3. MUCOSTA [Concomitant]
     Indication: PAIN
     Dosage: 100 MG, UNK
     Route: 048
     Dates: start: 20110212
  4. CEFZON [Concomitant]
     Indication: INFECTION PROPHYLAXIS
     Dosage: 100 MG, 3X/DAY
     Route: 048
     Dates: start: 20110213, end: 20110215
  5. PL GRAN. [Concomitant]
     Indication: OROPHARYNGEAL PAIN
     Dosage: 1 G, 3X/DAY
     Route: 048
     Dates: start: 20110217, end: 20110223
  6. LOXONIN [Concomitant]
     Indication: PAIN
     Dosage: 60 MG, UNK
     Route: 048
     Dates: start: 20110212, end: 20110215
  7. DEQUALINIUM CHLORIDE [Concomitant]
     Indication: PAIN
     Dosage: 0.25 MG, UNK
     Dates: start: 20110213
  8. PL GRAN. [Concomitant]
     Indication: RHINORRHOEA
  9. VOLTAREN [Concomitant]
     Indication: PAIN
     Dosage: 25 MG, UNK
     Route: 048
     Dates: start: 20110218
  10. RHYTHMY [Concomitant]
     Indication: INSOMNIA
     Dosage: 2 MG, AS NEEDED
     Route: 048
     Dates: start: 20110209, end: 20110213

REACTIONS (6)
  - FAECAL INCONTINENCE [None]
  - URINARY INCONTINENCE [None]
  - ABNORMAL BEHAVIOUR [None]
  - SOMNOLENCE [None]
  - DIZZINESS [None]
  - DRUG EFFECT DECREASED [None]
